FAERS Safety Report 5087833-6 (Version None)
Quarter: 2006Q3

REPORT INFORMATION
  Report Type: 
  Country: None (occurrence: None)
  Receive Date: 20060824
  Receipt Date: 20060821
  Transmission Date: 20061208
  Serious: Yes (Death)
  Sender: FDA-Public Use
  Company Number: 2006AP03931

PATIENT
  Sex: Male

DRUGS (2)
  1. ZOLADEX [Suspect]
     Indication: PROSTATE CANCER
     Route: 058
  2. CASODEX [Suspect]
     Indication: PROSTATE CANCER
     Dosage: 2ND DOSE ADMINISTERED
     Route: 048

REACTIONS (2)
  - INTERSTITIAL LUNG DISEASE [None]
  - MYOCARDIAL INFARCTION [None]
